FAERS Safety Report 5304942-4 (Version None)
Quarter: 2007Q2

REPORT INFORMATION
  Report Type: 
  Country: None (occurrence: None)
  Receive Date: 20070423
  Receipt Date: 20070411
  Transmission Date: 20071010
  Serious: Yes (Other)
  Sender: FDA-Public Use
  Company Number: US-PFIZER INC-2007029530

PATIENT
  Sex: Female

DRUGS (2)
  1. CHANTIX [Suspect]
     Dates: start: 20070331, end: 20070401
  2. POTASSIUM ACETATE [Concomitant]

REACTIONS (10)
  - ABDOMINAL PAIN UPPER [None]
  - BACK PAIN [None]
  - BLOOD PRESSURE INCREASED [None]
  - BLOOD URINE PRESENT [None]
  - CHAPPED LIPS [None]
  - MUSCLE SPASMS [None]
  - PYREXIA [None]
  - THIRST [None]
  - TONGUE DRY [None]
  - VISION BLURRED [None]
